FAERS Safety Report 9344707 (Version 1)
Quarter: 2013Q2

REPORT INFORMATION
  Report Type: Spontaneous
  Country: IT (occurrence: IT)
  Receive Date: 20130612
  Receipt Date: 20130612
  Transmission Date: 20140414
  Serious: Yes (Hospitalization)
  Sender: FDA-Public Use
  Company Number: IT-PFIZER INC-2013169255

PATIENT
  Age: 53 Year
  Sex: Male

DRUGS (3)
  1. TRIATEC [Suspect]
     Indication: HYPERTENSION
     Dosage: 0.5 DF, DAILY
     Route: 048
     Dates: start: 20130401, end: 20130408
  2. XANAX [Concomitant]
     Dosage: UNK
  3. FULCRO [Concomitant]
     Dosage: UNK

REACTIONS (5)
  - Epistaxis [Unknown]
  - Headache [Unknown]
  - Vertigo [Unknown]
  - Vomiting [Unknown]
  - Drug ineffective [Unknown]
